FAERS Safety Report 4869384-4 (Version None)
Quarter: 2005Q4

REPORT INFORMATION
  Report Type: 
  Country: None (occurrence: None)
  Receive Date: 20051230
  Receipt Date: 20051005
  Transmission Date: 20060501
  Serious: Yes (Hospitalization)
  Sender: FDA-Public Use
  Company Number: US-MERCK-0510USA04085

PATIENT
  Age: 54 Year
  Sex: Female
  Weight: 48 kg

DRUGS (4)
  1. VIOXX [Suspect]
     Indication: ARTHRITIS
     Route: 048
     Dates: start: 20000101, end: 20040101
  2. PREMARIN [Concomitant]
     Route: 065
     Dates: end: 20040728
  3. ANTIMICROBIAL (UNSPECIFIED) [Concomitant]
     Route: 065
  4. ACYCLOVIR [Concomitant]
     Route: 065

REACTIONS (2)
  - CEREBRAL ISCHAEMIA [None]
  - CULTURE STOOL POSITIVE [None]
